FAERS Safety Report 5910139-7 (Version None)
Quarter: 2008Q4

REPORT INFORMATION
  Report Type: 
  Country: None (occurrence: None)
  Receive Date: 20081006
  Receipt Date: 20081006
  Transmission Date: 20090506
  Serious: Yes (Life-Threatening)
  Sender: FDA-Public Use
  Company Number: None

PATIENT
  Age: 50 Year
  Sex: Male
  Weight: 72.5755 kg

DRUGS (2)
  1. PEGASYS (INTERFERON ALPHA-2A) [Suspect]
     Indication: HEPATITIS C
     Dosage: 180 M GRAMS INJECTED ONCE WEEKLY
     Dates: start: 20030601, end: 20031101
  2. COPEGASYS (RIBAVIRIN0 [Suspect]
     Indication: HEPATITIS C
     Dosage: 1000 MG DAILY 1000 MG DAILY
     Dates: start: 20030601, end: 20031101

REACTIONS (12)
  - ANAEMIA [None]
  - COMA [None]
  - DYSARTHRIA [None]
  - FATIGUE [None]
  - IMPAIRED DRIVING ABILITY [None]
  - INFECTION SUSCEPTIBILITY INCREASED [None]
  - LIBIDO DECREASED [None]
  - PERSONALITY CHANGE [None]
  - PNEUMONIA [None]
  - SOMNOLENCE [None]
  - THINKING ABNORMAL [None]
  - VISUAL IMPAIRMENT [None]
